FAERS Safety Report 21022836 (Version 2)
Quarter: 2024Q3

REPORT INFORMATION
  Report Type: Spontaneous
  Country: JP (occurrence: JP)
  Receive Date: 20220629
  Receipt Date: 20240927
  Transmission Date: 20241016
  Serious: Yes (Other)
  Sender: BAXTER
  Company Number: JP-BAXTER-2022BAX013557

PATIENT

DRUGS (1)
  1. DOXORUBICIN [Suspect]
     Active Substance: DOXORUBICIN
     Indication: Product used for unknown indication
     Dosage: UNK, DOSAGE FORM: INJ (INJECTION (INCLUDING INJECTIONS DISSOLVED AT POINT OF USE. INCLUDING CENTRAL
     Route: 042

REACTIONS (1)
  - Bradycardia [Unknown]
